FAERS Safety Report 4958241-0 (Version None)
Quarter: 2006Q1

REPORT INFORMATION
  Report Type: 
  Country: None (occurrence: None)
  Receive Date: 20060330
  Receipt Date: 20060322
  Transmission Date: 20060701
  Serious: Yes (Hospitalization)
  Sender: FDA-Public Use
  Company Number: JP-JPN-A20052425

PATIENT
  Sex: Female

DRUGS (3)
  1. ALKERAN [Suspect]
     Indication: STEM CELL TRANSPLANT
     Route: 065
  2. CISPLATIN [Concomitant]
     Route: 065
  3. THIOTEPA [Concomitant]
     Route: 065

REACTIONS (9)
  - HAEMATURIA [None]
  - HAEMOLYTIC ANAEMIA [None]
  - HAEMOLYTIC URAEMIC SYNDROME [None]
  - HYPERTENSION [None]
  - OEDEMA [None]
  - PROTEINURIA [None]
  - RENAL DISORDER [None]
  - THROMBOCYTOPENIA [None]
  - URINARY TRACT DISORDER [None]
